FAERS Safety Report 16081328 (Version 6)
Quarter: 2025Q3

REPORT INFORMATION
  Report Type: Spontaneous
  Country: EU (occurrence: EU)
  Receive Date: 20190316
  Receipt Date: 20250909
  Transmission Date: 20251020
  Serious: Yes (Other)
  Sender: AUROBINDO
  Company Number: EU-AUROBINDO-AUR-APL-2019-013187

PATIENT
  Age: 70 Year
  Sex: Female

DRUGS (8)
  1. SOTALOL [Suspect]
     Active Substance: SOTALOL
     Indication: Arrhythmia
     Route: 065
  2. SOTALOL [Suspect]
     Active Substance: SOTALOL
     Indication: Atrial fibrillation
     Dosage: 32 MILLIGRAM, ONCE A DAY, 16 MILLIGRAM, BID
     Route: 065
  3. SOTALOL [Suspect]
     Active Substance: SOTALOL
     Dosage: 320 MILLIGRAM, ONCE A DAY, 160 MG, BID
     Route: 065
  4. PERINDOPRIL [Suspect]
     Active Substance: PERINDOPRIL
     Indication: Hypertension
     Route: 065
  5. AMLODIPINE [Suspect]
     Active Substance: AMLODIPINE BESYLATE
     Indication: Hypertension
     Dosage: 5 MILLIGRAM, ONCE A DAY
     Route: 065
  6. AMIODARONE [Suspect]
     Active Substance: AMIODARONE
     Indication: Product used for unknown indication
     Route: 065
  7. DABIGATRAN [Suspect]
     Active Substance: DABIGATRAN
     Indication: Product used for unknown indication
     Dosage: 300 MILLIGRAM, ONCE A DAY (150 MG, BID)
     Route: 065
  8. ROSUVASTATIN [Suspect]
     Active Substance: ROSUVASTATIN
     Indication: Product used for unknown indication
     Dosage: 5 MILLIGRAM, ONCE A DAY
     Route: 065

REACTIONS (4)
  - Atrial fibrillation [Unknown]
  - General physical health deterioration [Unknown]
  - Therapeutic response decreased [Unknown]
  - Disease progression [Unknown]
